FAERS Safety Report 9943646 (Version 1)
Quarter: 2014Q1

REPORT INFORMATION
  Report Type: Spontaneous
  Country: PR (occurrence: PR)
  Receive Date: 20140303
  Receipt Date: 20140303
  Transmission Date: 20141002
  Serious: No
  Sender: FDA-Public Use
  Company Number: PR-ABBVIE-13P-131-1051010-00

PATIENT
  Age: 46 Year
  Sex: Male
  Weight: 96.7 kg

DRUGS (5)
  1. HUMIRA [Suspect]
     Indication: PRODUCT USED FOR UNKNOWN INDICATION
     Route: 058
  2. ANALAPRIL [Concomitant]
     Indication: HYPERTENSION
     Route: 048
  3. THEODUR [Concomitant]
     Indication: ASTHMA
     Route: 048
  4. QVAR [Concomitant]
     Indication: ASTHMA
     Route: 048
  5. PROAIR [Concomitant]
     Indication: ASTHMA
     Route: 048

REACTIONS (2)
  - Wrong patient received medication [Recovered/Resolved]
  - Injury associated with device [Recovered/Resolved]
